FAERS Safety Report 6608284-6 (Version None)
Quarter: 2010Q1

REPORT INFORMATION
  Report Type: 
  Country: None (occurrence: None)
  Receive Date: 20100301
  Receipt Date: 20100218
  Transmission Date: 20100710
  Serious: Yes (Other)
  Sender: FDA-Public Use
  Company Number: FI-JNJFOC-20070900287

PATIENT
  Sex: Female

DRUGS (4)
  1. REMICADE [Suspect]
     Indication: IRIDOCYCLITIS
     Route: 042
  2. PARACETAMOL [Concomitant]
     Indication: PREMEDICATION
  3. CETIRIZINE HCL [Concomitant]
     Indication: PREMEDICATION
  4. METHOTREXATE [Concomitant]

REACTIONS (5)
  - ABDOMINAL PAIN UPPER [None]
  - COUGH [None]
  - DYSPNOEA [None]
  - INFUSION RELATED REACTION [None]
  - VOMITING [None]
